FAERS Safety Report 6219719-5 (Version None)
Quarter: 2009Q2

REPORT INFORMATION
  Report Type: 
  Country: None (occurrence: None)
  Receive Date: 20090605
  Receipt Date: 20090521
  Transmission Date: 20091009
  Serious: Yes (Death)
  Sender: FDA-Public Use
  Company Number: 2008AL011195

PATIENT
  Age: 68 Year
  Sex: Male

DRUGS (25)
  1. DIGOXIN [Suspect]
     Dosage: 0.25, DAILY, PO
     Route: 048
  2. PRAVACHOL [Concomitant]
  3. FUROSEMIDE [Concomitant]
  4. BENAZEPRIL HYDROCHLORIDE [Concomitant]
  5. COREG [Concomitant]
  6. COMBIVENT [Concomitant]
  7. VIGAMOX [Concomitant]
  8. THEOPHYLLINE [Concomitant]
  9. FORADIL [Concomitant]
  10. CEPHALEXIN [Concomitant]
  11. ACETAMINOPHEN AND HYDROCODONE BITARTRATE [Concomitant]
  12. ADVAIR HFA [Concomitant]
  13. CARVEDILOL [Concomitant]
  14. LEVAQUIN [Concomitant]
  15. PAROXETINE HCL [Concomitant]
  16. TEMAZEPAM [Concomitant]
  17. NYSTATIN [Concomitant]
  18. BIAXIN [Concomitant]
  19. TRAZODONE HCL [Concomitant]
  20. AVELOX [Concomitant]
  21. PAXIL [Concomitant]
  22. ASTELIN [Concomitant]
  23. ZYRTEC [Concomitant]
  24. PRAVASTATIN [Concomitant]
  25. ALBUTEROL [Concomitant]

REACTIONS (17)
  - CHRONIC OBSTRUCTIVE PULMONARY DISEASE [None]
  - CONGESTIVE CARDIOMYOPATHY [None]
  - CONSTIPATION [None]
  - COUGH [None]
  - DIARRHOEA [None]
  - DYSPNOEA [None]
  - ECONOMIC PROBLEM [None]
  - FAMILY STRESS [None]
  - FATIGUE [None]
  - INSOMNIA [None]
  - ISCHAEMIC CARDIOMYOPATHY [None]
  - MULTIPLE INJURIES [None]
  - MUSCULAR WEAKNESS [None]
  - OEDEMA PERIPHERAL [None]
  - PAIN [None]
  - RENAL FAILURE ACUTE [None]
  - WEIGHT DECREASED [None]
